FAERS Safety Report 6155884-6 (Version None)
Quarter: 2009Q2

REPORT INFORMATION
  Report Type: 
  Country: None (occurrence: None)
  Receive Date: 20090415
  Receipt Date: 20090415
  Transmission Date: 20091009
  Serious: Yes (Hospitalization)
  Sender: FDA-Public Use
  Company Number: PHHO2006BR04914

PATIENT
  Sex: Female
  Weight: 59.5 kg

DRUGS (3)
  1. CGS 20267 T30748+ [Suspect]
     Indication: BREAST CANCER
     Dosage: 2.5 MG, QD
     Route: 048
     Dates: start: 20020207
  2. TAMOXIFEN CITRATE [Suspect]
     Dosage: 20 MG, QD
  3. SIMVASTATIN [Concomitant]
     Indication: HYPERCHOLESTEROLAEMIA
     Route: 048
     Dates: start: 20050830

REACTIONS (4)
  - DIZZINESS [None]
  - ENCEPHALOPATHY [None]
  - SYNCOPE [None]
  - TRANSIENT ISCHAEMIC ATTACK [None]
